FAERS Safety Report 7277317-9 (Version None)
Quarter: 2010Q4

REPORT INFORMATION
  Report Type: 
  Country: None (occurrence: None)
  Receive Date: 20101201
  Receipt Date: 20100831
  Transmission Date: 20110411
  Serious: Yes (Other)
  Sender: FDA-Public Use
  Company Number: 314074

PATIENT
  Age: 58 Year
  Sex: Female

DRUGS (7)
  1. NOVOLOG [Suspect]
     Indication: TYPE 2 DIABETES MELLITUS
     Dosage: SUBCUTANEOUS
     Route: 058
     Dates: start: 20050101
  2. MELOXICAM [Concomitant]
  3. GLUCOPHAGE /00082701/ (METFORMIN) [Concomitant]
  4. GLIMEPIRIDE [Concomitant]
  5. FUROSEMIDE [Concomitant]
  6. PREVACID [Concomitant]
  7. DOXEPIN HCL [Concomitant]

REACTIONS (1)
  - URTICARIA [None]
